FAERS Safety Report 6551935-5 (Version None)
Quarter: 2010Q1

REPORT INFORMATION
  Report Type: 
  Country: None (occurrence: None)
  Receive Date: 20100120
  Receipt Date: 20100107
  Transmission Date: 20100710
  Serious: Yes (Other)
  Sender: FDA-Public Use
  Company Number: CAP10000021

PATIENT
  Age: 79 Year
  Sex: Female
  Weight: 68 kg

DRUGS (5)
  1. ACTONEL [Suspect]
     Dosage: 35 MG, 1 ONLY, ORAL
     Route: 048
  2. CADUET (AMLODIPINE BESILATE ATORVASTATIN CALCIUM) TABLET [Concomitant]
  3. POTASSIUM CHLORIDE [Concomitant]
  4. PRO-INDAPAMIDE (INDAPAMIDE) TABLET [Concomitant]
  5. ALL OTHER THERAPEUTIC PRODUCTS [Concomitant]

REACTIONS (6)
  - BACK PAIN [None]
  - CHEST DISCOMFORT [None]
  - DYSPNOEA [None]
  - JOINT SWELLING [None]
  - MUSCULOSKELETAL CHEST PAIN [None]
  - PAIN IN EXTREMITY [None]
